FAERS Safety Report 4813334-3 (Version None)
Quarter: 2005Q4

REPORT INFORMATION
  Report Type: 
  Country: None (occurrence: None)
  Receive Date: 20051028
  Receipt Date: 20050503
  Transmission Date: 20060501
  Serious: No
  Sender: FDA-Public Use
  Company Number: US-GLAXOSMITHKLINE-A0557092A

PATIENT
  Age: 63 Year
  Sex: Female

DRUGS (13)
  1. ADVAIR DISKUS 100/50 [Suspect]
     Indication: ASTHMA
     Route: 055
  2. SINGULAIR [Concomitant]
  3. ASTELIN [Concomitant]
  4. NASONEX [Concomitant]
  5. SYNTHROID [Concomitant]
  6. HYZAAR [Concomitant]
  7. VERAPAMIL [Concomitant]
  8. LASIX [Concomitant]
  9. DIAZEPAM [Concomitant]
  10. GLUCOPHAGE [Concomitant]
  11. NEBULIZER [Concomitant]
  12. FISH OIL [Concomitant]
  13. ASCORBIC ACID [Concomitant]

REACTIONS (5)
  - COUGH [None]
  - LYMPHADENOPATHY [None]
  - PEAK EXPIRATORY FLOW RATE DECREASED [None]
  - SINUS CONGESTION [None]
  - WHEEZING [None]
